FAERS Safety Report 18328530 (Version 1)
Quarter: 2020Q3

REPORT INFORMATION
  Report Type: Spontaneous
  Country: AU (occurrence: AU)
  Receive Date: 20200930
  Receipt Date: 20200930
  Transmission Date: 20201103
  Serious: Yes (Other)
  Sender: FDA-Public Use
  Company Number: AU-ALKEM LABORATORIES LIMITED-AU-ALKEM-2020-06196

PATIENT
  Sex: Female

DRUGS (3)
  1. YASMIN [Suspect]
     Active Substance: DROSPIRENONE\ETHINYL ESTRADIOL
     Indication: PRODUCT USED FOR UNKNOWN INDICATION
     Dosage: UNK
     Route: 065
  2. FINASTERIDE. [Suspect]
     Active Substance: FINASTERIDE
     Indication: PRODUCT USED FOR UNKNOWN INDICATION
     Dosage: UNK
     Route: 065
  3. YAZ [Suspect]
     Active Substance: DROSPIRENONE\ETHINYL ESTRADIOL
     Indication: PRODUCT USED FOR UNKNOWN INDICATION
     Dosage: UNK
     Route: 065

REACTIONS (10)
  - Postural orthostatic tachycardia syndrome [Unknown]
  - Raynaud^s phenomenon [Unknown]
  - Blood immunoglobulin M increased [Unknown]
  - Osteoporosis [Unknown]
  - Mast cell activation syndrome [Unknown]
  - Pancreatic failure [Unknown]
  - Undifferentiated connective tissue disease [Unknown]
  - White blood cell count decreased [Unknown]
  - Ehlers-Danlos syndrome [Unknown]
  - Fibromyalgia [Unknown]
